FAERS Safety Report 4459001-X (Version None)
Quarter: 2004Q3

REPORT INFORMATION
  Report Type: 
  Country: None (occurrence: None)
  Receive Date: 20040922
  Receipt Date: 20040922
  Transmission Date: 20050211
  Serious: No
  Sender: FDA-Public Use
  Company Number: None

PATIENT
  Age: 80 Year
  Sex: Male

DRUGS (3)
  1. WARFARIN SODIUM [Suspect]
     Indication: ATRIAL FIBRILLATION
     Dosage: 5 MG DAILY PO
     Route: 048
  2. WARFARIN SODIUM [Suspect]
     Indication: DEEP VENOUS THROMBOSIS PROPHYLAXIS
     Dosage: 5 MG DAILY PO
     Route: 048
  3. LOVENOX [Suspect]
     Dosage: 80 SQ Q12
     Route: 058

REACTIONS (2)
  - DIZZINESS [None]
  - GASTROINTESTINAL HAEMORRHAGE [None]
